FAERS Safety Report 22532769 (Version 1)
Quarter: 2023Q2

REPORT INFORMATION
  Report Type: Spontaneous
  Country: CN (occurrence: CN)
  Receive Date: 20230607
  Receipt Date: 20230607
  Transmission Date: 20230722
  Serious: Yes (Hospitalization)
  Sender: FDA-Public Use
  Company Number: CN-002147023-NVSC2022CN261556

PATIENT
  Age: 74 Year
  Sex: Male
  Weight: 50 kg

DRUGS (1)
  1. TOBRADEX [Suspect]
     Active Substance: DEXAMETHASONE\TOBRAMYCIN
     Indication: Cataract
     Dosage: 0.1 ML, 12 TIMES QD
     Route: 047
     Dates: start: 20220702, end: 20220728

REACTIONS (1)
  - Corneal oedema [Recovering/Resolving]

NARRATIVE: CASE EVENT DATE: 20220710
